FAERS Safety Report 18465249 (Version 1)
Quarter: 2020Q4

REPORT INFORMATION
  Report Type: Spontaneous
  Country: US (occurrence: US)
  Receive Date: 20201105
  Receipt Date: 20201105
  Transmission Date: 20210114
  Serious: Yes (Death, Other)
  Sender: FDA-Public Use
  Company Number: US-SPECGX-T202002149

PATIENT
  Age: 12 Year
  Sex: Female

DRUGS (3)
  1. DINUTUXIMAB [Suspect]
     Active Substance: DINUTUXIMAB
     Indication: SPINAL CORD COMPRESSION
     Dosage: UNK
     Route: 042
  2. METHADONE [Suspect]
     Active Substance: METHADONE HYDROCHLORIDE
     Indication: BONE PAIN
     Dosage: UNK
     Route: 065
  3. DEXAMETHASONE. [Suspect]
     Active Substance: DEXAMETHASONE
     Indication: BONE PAIN
     Dosage: UNK
     Route: 065

REACTIONS (5)
  - Product use issue [Unknown]
  - Posterior reversible encephalopathy syndrome [Recovering/Resolving]
  - Blood pressure systolic increased [Unknown]
  - Neuroblastoma recurrent [Fatal]
  - Spinal cord compression [Unknown]
